FAERS Safety Report 5593057-6 (Version None)
Quarter: 2008Q1

REPORT INFORMATION
  Report Type: 
  Country: None (occurrence: None)
  Receive Date: 20080116
  Receipt Date: 20080107
  Transmission Date: 20080703
  Serious: Yes (Other)
  Sender: FDA-Public Use
  Company Number: US-JNJFOC-20061006161

PATIENT
  Sex: Male

DRUGS (2)
  1. RISPERDAL [Suspect]
  2. RISPERDAL [Suspect]
     Indication: SCHIZOAFFECTIVE DISORDER

REACTIONS (4)
  - EXTRAPYRAMIDAL DISORDER [None]
  - MUSCLE TWITCHING [None]
  - PARKINSONISM [None]
  - TYPE 2 DIABETES MELLITUS [None]
